FAERS Safety Report 8967808 (Version 1)
Quarter: 2012Q4

REPORT INFORMATION
  Report Type: 
  Country: US (occurrence: US)
  Receive Date: 20121217
  Receipt Date: 20121217
  Transmission Date: 20130627
  Serious: No
  Sender: FDA-Public Use
  Company Number: US-009507513-1212USA004579

PATIENT

DRUGS (1)
  1. COSOPT [Suspect]
     Dosage: 1 drop bid, UNK
     Route: 031

REACTIONS (1)
  - Vision blurred [Unknown]
